FAERS Safety Report 23121838 (Version 1)
Quarter: 2023Q4

REPORT INFORMATION
  Report Type: Spontaneous
  Country: US (occurrence: US)
  Receive Date: 20231030
  Receipt Date: 20231030
  Transmission Date: 20240110
  Serious: No
  Sender: FDA-Public Use
  Company Number: US-JNJFOC-20231059371

PATIENT
  Age: 21 Year
  Sex: Male
  Weight: 81.72 kg

DRUGS (2)
  1. TREMFYA [Suspect]
     Active Substance: GUSELKUMAB
     Indication: Psoriasis
     Route: 058
     Dates: start: 20230920
  2. TREMFYA [Suspect]
     Active Substance: GUSELKUMAB
     Indication: Guttate psoriasis

REACTIONS (1)
  - Psoriasis [Unknown]
